FAERS Safety Report 8298924-0 (Version None)
Quarter: 2012Q2

REPORT INFORMATION
  Report Type: 
  Country: None (occurrence: None)
  Receive Date: 20120419
  Receipt Date: 20120417
  Transmission Date: 20120825
  Serious: No
  Sender: FDA-Public Use
  Company Number: US-PFIZER INC-2012096114

PATIENT
  Sex: Female

DRUGS (1)
  1. LYRICA [Suspect]
     Indication: LIMB DISCOMFORT
     Dosage: 200 MG, 2X/DAY
     Route: 048
     Dates: end: 20110101

REACTIONS (1)
  - PAIN IN EXTREMITY [None]
